FAERS Safety Report 16676227 (Version 1)
Quarter: 2019Q3

REPORT INFORMATION
  Report Type: Spontaneous
  Country: FR (occurrence: FR)
  Receive Date: 20190807
  Receipt Date: 20190807
  Transmission Date: 20191004
  Serious: Yes (Hospitalization)
  Sender: FDA-Public Use
  Company Number: FR-DENTSPLY-2019SCDP000422

PATIENT
  Age: 2 Month

DRUGS (2)
  1. PRILOCAINE AND LIDOCAINE [Suspect]
     Active Substance: LIDOCAINE\PRILOCAINE
     Dosage: 1 EMLA PATCH, PLACED ONE ON EACH THIGH
  2. PRILOCAINE AND LIDOCAINE [Suspect]
     Active Substance: LIDOCAINE\PRILOCAINE
     Indication: PRODUCT USED FOR UNKNOWN INDICATION
     Dosage: 1 EMLA PATCH , PLACED ONE ON EACH THIGH

REACTIONS (2)
  - Accidental overdose [Unknown]
  - Methaemoglobinaemia [Recovering/Resolving]
